FAERS Safety Report 5625102-3 (Version None)
Quarter: 2008Q1

REPORT INFORMATION
  Report Type: 
  Country: None (occurrence: None)
  Receive Date: 20080213
  Receipt Date: 20080201
  Transmission Date: 20080703
  Serious: No
  Sender: FDA-Public Use
  Company Number: US-BOEHRINGER INGELHEIM GMBH, GERMANY-2008-BP-01634BP

PATIENT
  Sex: Female

DRUGS (4)
  1. MOBIC [Suspect]
     Indication: PAIN
     Route: 048
     Dates: start: 20071106
  2. MOBIC [Suspect]
     Indication: OSTEOARTHRITIS
     Route: 048
  3. WELLBUTRIN SR [Concomitant]
  4. PROTONIX [Concomitant]

REACTIONS (1)
  - THERAPEUTIC RESPONSE DECREASED [None]
